FAERS Safety Report 5166666-6 (Version None)
Quarter: 2006Q4

REPORT INFORMATION
  Report Type: 
  Country: None (occurrence: None)
  Receive Date: 20061130
  Receipt Date: 20061130
  Transmission Date: 20070319
  Serious: Yes (Other)
  Sender: FDA-Public Use
  Company Number: None

PATIENT
  Age: 50 Year
  Sex: Female
  Weight: 107.9561 kg

DRUGS (2)
  1. ZOCOR [Suspect]
     Indication: HYPERCHOLESTEROLAEMIA
     Dosage: 80MG   QD    PO
     Route: 048
     Dates: start: 20060111, end: 20060413
  2. LIPITOR [Concomitant]

REACTIONS (2)
  - ARTHRALGIA [None]
  - MUSCLE SPASMS [None]
